FAERS Safety Report 23237752 (Version 4)
Quarter: 2024Q3

REPORT INFORMATION
  Report Type: Spontaneous
  Country: US (occurrence: US)
  Receive Date: 20231128
  Receipt Date: 20240801
  Transmission Date: 20241017
  Serious: Yes (Other)
  Sender: SANOFI AVENTIS
  Company Number: US-SA-SAC20231122000357

PATIENT
  Age: 67 Year
  Sex: Male

DRUGS (1)
  1. KEVZARA [Suspect]
     Active Substance: SARILUMAB
     Indication: Rheumatoid arthritis
     Dosage: 200 MG, QOW
     Route: 058
     Dates: start: 20231031

REACTIONS (6)
  - Hip arthroplasty [Unknown]
  - Musculoskeletal stiffness [Unknown]
  - Blood iron decreased [Recovering/Resolving]
  - Pain [Unknown]
  - Joint injury [Unknown]
  - Drug ineffective [Unknown]
